FAERS Safety Report 7956650-9 (Version None)
Quarter: 2011Q4

REPORT INFORMATION
  Report Type: 
  Country: None (occurrence: None)
  Receive Date: 20111205
  Receipt Date: 20111129
  Transmission Date: 20120403
  Serious: Yes (Other)
  Sender: FDA-Public Use
  Company Number: JP-JNJFOC-20111200836

PATIENT
  Age: 78 Year
  Sex: Female

DRUGS (6)
  1. TRAMADOL HYDROCHLORIDE/ACETAMINOPHEN [Suspect]
     Indication: PAIN
     Dosage: 2 DOSES 1 PER 1 DAY
     Route: 048
     Dates: start: 20110826, end: 20111125
  2. LYRICA [Concomitant]
     Route: 048
  3. DOMPERIDONE [Concomitant]
     Indication: NAUSEA
     Route: 048
     Dates: start: 20110826, end: 20111125
  4. VOLTAREN [Concomitant]
     Route: 054
  5. JANUVIA [Concomitant]
     Indication: DIABETES MELLITUS
     Route: 048
     Dates: start: 20111027, end: 20111110
  6. LIVALO [Concomitant]
     Indication: HYPERLIPIDAEMIA
     Route: 048

REACTIONS (1)
  - DIABETES MELLITUS [None]
